FAERS Safety Report 5598039-6 (Version None)
Quarter: 2008Q1

REPORT INFORMATION
  Report Type: 
  Country: None (occurrence: None)
  Receive Date: 20080122
  Receipt Date: 20080108
  Transmission Date: 20080703
  Serious: Yes (Hospitalization)
  Sender: FDA-Public Use
  Company Number: US-ELI_LILLY_AND_COMPANY-US200801001364

PATIENT
  Sex: Female

DRUGS (9)
  1. FORTEO [Suspect]
     Dosage: UNK, UNK
     Dates: start: 20071101, end: 20071223
  2. UNIVASC [Concomitant]
     Dosage: 15 MG, DAILY (1/D)
  3. ADVAIR DISKUS 100/50 [Concomitant]
     Dosage: UNK, 2/D
     Route: 055
  4. ALBUTEROL [Concomitant]
     Dosage: UNK, AS NEEDED
     Route: 055
  5. ATROVENT [Concomitant]
     Dosage: UNK, 2/D
     Route: 055
  6. RANITIDINE [Concomitant]
     Dosage: 300 MG, 2/D
  7. MULTI-VITAMIN [Concomitant]
     Dosage: UNK, DAILY (1/D)
  8. MAGNESIUM [Concomitant]
     Dosage: 400 MG, DAILY (1/D)
  9. CALCIUM WITH VITAMIN D [Concomitant]
     Dosage: 1200 MG, DAILY (1/D)

REACTIONS (2)
  - BODY TEMPERATURE INCREASED [None]
  - DYSPNOEA [None]
